FAERS Safety Report 9202211 (Version 1)
Quarter: 2013Q2

REPORT INFORMATION
  Report Type: Report from Study
  Country: DE (occurrence: DE)
  Receive Date: 20130401
  Receipt Date: 20130401
  Transmission Date: 20140414
  Serious: Yes (Other)
  Sender: FDA-Public Use
  Company Number: DE-GLAXOSMITHKLINE-B0879124A

PATIENT
  Sex: 0

DRUGS (1)
  1. ELTROMBOPAG [Suspect]
     Indication: IDIOPATHIC THROMBOCYTOPENIC PURPURA
     Route: 065

REACTIONS (3)
  - Myelofibrosis [Unknown]
  - Ill-defined disorder [Unknown]
  - Ill-defined disorder [Unknown]
